FAERS Safety Report 4687155-9 (Version None)
Quarter: 2005Q2

REPORT INFORMATION
  Report Type: 
  Country: None (occurrence: None)
  Receive Date: 20050608
  Receipt Date: 20050601
  Transmission Date: 20051028
  Serious: Yes (Death)
  Sender: FDA-Public Use
  Company Number: S05-USA-01999-01

PATIENT
  Age: 69 Year
  Sex: Male
  Weight: 113.3993 kg

DRUGS (5)
  1. CELEXA [Suspect]
     Indication: DEPRESSION
     Dosage: 60 MG QD PO
     Route: 048
     Dates: start: 19990101, end: 20050215
  2. CELEXA [Suspect]
     Indication: FIBROMYALGIA
     Dosage: 60 MG QD PO
     Route: 048
     Dates: start: 19990101, end: 20050215
  3. COUMADIN [Concomitant]
  4. TUMS (CALCIM CARBONATE) [Concomitant]
  5. ANTI-HYPERTENSIVE MEDICATION (NOS) [Concomitant]

REACTIONS (6)
  - ACCIDENTAL DEATH [None]
  - CARDIAC ENZYMES INCREASED [None]
  - DRUG LEVEL INCREASED [None]
  - DRUG TOXICITY [None]
  - LABORATORY TEST INTERFERENCE [None]
  - MYOCARDIAL INFARCTION [None]
